FAERS Safety Report 7148600-2 (Version None)
Quarter: 2010Q4

REPORT INFORMATION
  Report Type: 
  Country: None (occurrence: None)
  Receive Date: 20101209
  Receipt Date: 20100201
  Transmission Date: 20110411
  Serious: No
  Sender: FDA-Public Use
  Company Number: A0842332A

PATIENT
  Age: 58 Year
  Sex: Male

DRUGS (6)
  1. AVANDAMET [Suspect]
     Dosage: 1TAB TWICE PER DAY
     Route: 048
     Dates: start: 20100125
  2. MINOCYCLINE HCL [Concomitant]
  3. HYDROCODONE [Concomitant]
  4. VYTORIN [Concomitant]
  5. EXFORGE [Concomitant]
  6. EYE DROPS [Concomitant]

REACTIONS (2)
  - VISUAL ACUITY REDUCED [None]
  - VISUAL IMPAIRMENT [None]
